FAERS Safety Report 13552067 (Version 2)
Quarter: 2017Q2

REPORT INFORMATION
  Report Type: Report from Study
  Country: GB (occurrence: GB)
  Receive Date: 20170516
  Receipt Date: 20170627
  Transmission Date: 20170830
  Serious: Yes (Hospitalization)
  Sender: FDA-Public Use
  Company Number: PHHY2015GB055222

PATIENT
  Age: 68 Year
  Sex: Male

DRUGS (1)
  1. GILENYA [Suspect]
     Active Substance: FINGOLIMOD HYDROCHLORIDE
     Indication: MULTIPLE SCLEROSIS
     Dosage: QD
     Route: 048
     Dates: start: 20140401, end: 201608

REACTIONS (11)
  - Multiple sclerosis [Recovered/Resolved]
  - Visual impairment [Recovered/Resolved]
  - Monocyte count decreased [Unknown]
  - Mobility decreased [Recovered/Resolved]
  - Dizziness [Unknown]
  - Urinary incontinence [Unknown]
  - Hypokinesia [Unknown]
  - Malaise [Recovered/Resolved]
  - Lymphocyte count decreased [Unknown]
  - Urinary tract infection [Recovered/Resolved]
  - Gait disturbance [Unknown]

NARRATIVE: CASE EVENT DATE: 20140520
